FAERS Safety Report 7728644-X (Version None)
Quarter: 2011Q3

REPORT INFORMATION
  Report Type: 
  Country: None (occurrence: None)
  Receive Date: 20110831
  Receipt Date: 20110831
  Transmission Date: 20111222
  Serious: Yes (Hospitalization)
  Sender: FDA-Public Use
  Company Number: None

PATIENT
  Age: 83 Year
  Sex: Male
  Weight: 90 kg

DRUGS (1)
  1. TERAZOSIN HCL [Suspect]
     Indication: BENIGN PROSTATIC HYPERPLASIA
     Dosage: 5 MG AT BEDTIME PO
     Route: 048
     Dates: start: 20080108, end: 20110804

REACTIONS (6)
  - RENAL DISORDER [None]
  - ORTHOSTATIC HYPOTENSION [None]
  - DIZZINESS [None]
  - BLOOD CREATININE INCREASED [None]
  - NAUSEA [None]
  - VOMITING [None]
